FAERS Safety Report 21203277 (Version 1)
Quarter: 2022Q3

REPORT INFORMATION
  Report Type: Spontaneous
  Country: US (occurrence: US)
  Receive Date: 20220811
  Receipt Date: 20220811
  Transmission Date: 20221027
  Serious: No
  Sender: FDA-Public Use
  Company Number: US-INCYTE CORPORATION-2022IN007585

PATIENT

DRUGS (1)
  1. JAKAFI [Suspect]
     Active Substance: RUXOLITINIB
     Indication: Myelodysplastic syndrome
     Dosage: 10 MILLIGRAM, BID
     Route: 048
     Dates: start: 20220118

REACTIONS (7)
  - Pain [Unknown]
  - Constipation [Unknown]
  - Dyschezia [Unknown]
  - Fatigue [Unknown]
  - Asthenia [Unknown]
  - Decreased activity [Unknown]
  - Off label use [Unknown]

NARRATIVE: CASE EVENT DATE: 20220118
